FAERS Safety Report 8838688 (Version 1)
Quarter: 2012Q4

REPORT INFORMATION
  Report Type: 
  Country: US (occurrence: US)
  Receive Date: 20121012
  Receipt Date: 20121012
  Transmission Date: 20130627
  Serious: No
  Sender: FDA-Public Use
  Company Number: US-009507513-1210USA005826

PATIENT
  Sex: Female

DRUGS (1)
  1. ZIOPTAN [Suspect]
     Dosage: 2 Gtt, hs
     Route: 047

REACTIONS (2)
  - Intercepted drug dispensing error [Unknown]
  - No adverse event [Unknown]
